FAERS Safety Report 9722833 (Version 1)
Quarter: 2013Q4

REPORT INFORMATION
  Report Type: Spontaneous
  Country: US (occurrence: None)
  Receive Date: 20131126
  Receipt Date: 20131126
  Transmission Date: 20140711
  Serious: Yes (Death)
  Sender: FDA-Public Use
  Company Number: B0947173A

PATIENT
  Sex: 0

DRUGS (6)
  1. MELPHALAN (FORMULATION UNKNOWN) (GENERIC) (MELPHALAN) [Suspect]
     Indication: PRODUCT USED FOR UNKNOWN INDICATION
  2. FLUDARABINE PHOSPHATE (FORMULATION UNKNOWN) (FLUDARABINE PHOSPHATE) [Suspect]
     Indication: PRODUCT USED FOR UNKNOWN INDICATION
  3. CARMUSTINE [Suspect]
     Indication: PRODUCT USED FOR UNKNOWN INDICATION
  4. TACROLIMUS [Concomitant]
  5. MYCOPHENOLATE MOFETIL [Concomitant]
  6. ANTITHYMOCYTE IG [Concomitant]

REACTIONS (1)
  - Infection [None]
